FAERS Safety Report 5783076-9 (Version None)
Quarter: 2008Q2

REPORT INFORMATION
  Report Type: 
  Country: None (occurrence: None)
  Receive Date: 20080624
  Receipt Date: 20080613
  Transmission Date: 20081010
  Serious: Yes (Hospitalization)
  Sender: FDA-Public Use
  Company Number: DK-AMGEN-US281106

PATIENT
  Sex: Female
  Weight: 56 kg

DRUGS (2)
  1. ENBREL [Suspect]
     Indication: RHEUMATOID ARTHRITIS
     Route: 058
     Dates: start: 20071004, end: 20080408
  2. METHOTREXATE [Concomitant]
     Indication: RHEUMATOID ARTHRITIS
     Dosage: 10 MG/WEEK
     Route: 048
     Dates: start: 20070307

REACTIONS (4)
  - EYE SWELLING [None]
  - INJECTION SITE REACTION [None]
  - LIP SWELLING [None]
  - URTICARIA [None]
